FAERS Safety Report 24716890 (Version 1)
Quarter: 2024Q4

REPORT INFORMATION
  Report Type: Spontaneous
  Country: GB (occurrence: GB)
  Receive Date: 20241210
  Receipt Date: 20241210
  Transmission Date: 20250115
  Serious: Yes (Hospitalization)
  Sender: MYLAN
  Company Number: GB-MYLANLABS-2024M1110275

PATIENT
  Age: 25 Year
  Sex: Female

DRUGS (4)
  1. PIROXICAM [Suspect]
     Active Substance: PIROXICAM
     Indication: Reversible cerebral vasoconstriction syndrome
     Dosage: 40 MILLIGRAM
     Route: 065
  2. TRAMADOL [Suspect]
     Active Substance: TRAMADOL
     Indication: Reversible cerebral vasoconstriction syndrome
     Dosage: 100 MILLIGRAM
     Route: 065
  3. IMMUNE GLOBULIN ANTIVENIN NOS [Concomitant]
     Active Substance: IMMUNE GLOBULIN ANTIVENIN NOS
     Indication: Snake bite
     Dosage: 100 MILLILITER, 10 VIALS
     Route: 065
  4. ACETAMINOPHEN [Concomitant]
     Active Substance: ACETAMINOPHEN
     Indication: Reversible cerebral vasoconstriction syndrome
     Dosage: 1 GRAM
     Route: 065

REACTIONS (1)
  - Therapy non-responder [Unknown]
